FAERS Safety Report 7303926-4 (Version None)
Quarter: 2011Q1

REPORT INFORMATION
  Report Type: 
  Country: None (occurrence: None)
  Receive Date: 20110221
  Receipt Date: 20110211
  Transmission Date: 20110831
  Serious: Yes (Other)
  Sender: FDA-Public Use
  Company Number: FR-ASTRAZENECA-2011SE08818

PATIENT
  Age: 985 Month
  Sex: Female

DRUGS (2)
  1. UVEODOSE [Concomitant]
     Indication: OSTEOPOROSIS
     Route: 065
  2. ARIMIDEX [Suspect]
     Indication: BREAST CANCER
     Route: 048
     Dates: start: 20100401, end: 20101101

REACTIONS (2)
  - OSTEOPOROSIS [None]
  - RENAL FAILURE [None]
